FAERS Safety Report 9147104 (Version 4)
Quarter: 2015Q2

REPORT INFORMATION
  Report Type: Report from Study
  Country: BE (occurrence: BE)
  Receive Date: 20130307
  Receipt Date: 20150626
  Transmission Date: 20150821
  Serious: Yes (Hospitalization, Other)
  Sender: FDA-Public Use
  Company Number: US-UCBSA-079377

PATIENT
  Age: 1 Year
  Sex: Male
  Weight: 10.6 kg

DRUGS (4)
  1. LACOSAMIDE EP [Suspect]
     Active Substance: LACOSAMIDE
     Indication: SEIZURE
     Dosage: 6 MG, 2X/DAY (BID)
     Route: 048
     Dates: start: 20130222, end: 20130313
  2. SULTHIAME [Concomitant]
     Active Substance: SULTHIAME
     Dosage: 20 MG, ONCE DAILY (QD)
     Route: 048
  3. VALPROATE [Concomitant]
     Active Substance: VALPROATE SODIUM
     Indication: EPILEPSY
     Dosage: 230 MG, 3X/DAY (TID)
     Route: 048
  4. SULTHIAME [Concomitant]
     Active Substance: SULTHIAME
     Indication: EPILEPSY
     Dosage: 40 MG, 2X/DAY (BID)
     Route: 048

REACTIONS (1)
  - Status epilepticus [Recovered/Resolved]

NARRATIVE: CASE EVENT DATE: 20130226
